FAERS Safety Report 24378085 (Version 1)
Quarter: 2024Q3

REPORT INFORMATION
  Report Type: Spontaneous
  Country: US (occurrence: None)
  Receive Date: 20240927
  Receipt Date: 20240927
  Transmission Date: 20241017
  Serious: Yes (Other)
  Sender: Public
  Company Number: None

PATIENT
  Age: 41 Year
  Sex: Female
  Weight: 47.7 kg

DRUGS (9)
  1. ARIPIPRAZOLE [Suspect]
     Active Substance: ARIPIPRAZOLE
     Indication: Irritability
     Dosage: OTHER QUANTITY : 0.5 TABLET(S);?FREQUENCY : DAILY;?
     Route: 048
     Dates: start: 20240918, end: 20240918
  2. ARIPIPRAZOLE [Suspect]
     Active Substance: ARIPIPRAZOLE
     Indication: Autism spectrum disorder
  3. VITAMINS [Concomitant]
     Active Substance: VITAMINS
  4. MAGNESIUM [Concomitant]
  5. BIOTIN [Concomitant]
     Active Substance: BIOTIN
  6. FISH OIL [Concomitant]
     Active Substance: FISH OIL
  7. HYALURONIC ACID [Concomitant]
     Active Substance: HYALURONIC ACID
  8. VITAMIN B12 [Concomitant]
     Active Substance: CYANOCOBALAMIN
  9. probiotics [Concomitant]

REACTIONS (14)
  - Violence-related symptom [None]
  - Thinking abnormal [None]
  - Restlessness [None]
  - Anxiety [None]
  - Palpitations [None]
  - Feeling of body temperature change [None]
  - Burning sensation [None]
  - Tremor [None]
  - Dyskinesia [None]
  - Somnolence [None]
  - Fatigue [None]
  - Thirst [None]
  - Nausea [None]
  - Akathisia [None]

NARRATIVE: CASE EVENT DATE: 20240918
